FAERS Safety Report 6507962-7 (Version None)
Quarter: 2009Q4

REPORT INFORMATION
  Report Type: 
  Country: None (occurrence: None)
  Receive Date: 20091221
  Receipt Date: 20091214
  Transmission Date: 20100525
  Serious: Yes (Other)
  Sender: FDA-Public Use
  Company Number: B0617674A

PATIENT
  Sex: Female

DRUGS (2)
  1. SUMATRIPTAN [Suspect]
     Indication: MIGRAINE
     Route: 065
  2. SSRI [Suspect]
     Route: 065

REACTIONS (2)
  - DRUG TOXICITY [None]
  - FLUSHING [None]
